FAERS Safety Report 8379078-9 (Version None)
Quarter: 2012Q2

REPORT INFORMATION
  Report Type: 
  Country: None (occurrence: None)
  Receive Date: 20120523
  Receipt Date: 20120521
  Transmission Date: 20120825
  Serious: Yes (Other)
  Sender: FDA-Public Use
  Company Number: US-BAYER-2012-041926

PATIENT
  Age: 26 Year
  Sex: Female
  Weight: 77.551 kg

DRUGS (1)
  1. MIRENA [Suspect]
     Indication: CONTRACEPTION
     Dosage: 20 MCG/24HR, CONT
     Route: 015
     Dates: start: 20110928

REACTIONS (3)
  - ECTOPIC PREGNANCY WITH INTRAUTERINE DEVICE [None]
  - PREGNANCY WITH CONTRACEPTIVE DEVICE [None]
  - HAEMORRHAGE IN PREGNANCY [None]
